FAERS Safety Report 12059073 (Version 1)
Quarter: 2016Q1

REPORT INFORMATION
  Report Type: Spontaneous
  Country: US (occurrence: US)
  Receive Date: 20160210
  Receipt Date: 20160210
  Transmission Date: 20160526
  Serious: No
  Sender: FDA-Public Use
  Company Number: US-STRIDES ARCOLAB LIMITED-2015SP002304

PATIENT

DRUGS (2)
  1. TACROLIMUS. [Suspect]
     Active Substance: TACROLIMUS
     Dosage: 0.3 MG/KG/DAY, EVERY 12 HRS
  2. TACROLIMUS. [Suspect]
     Active Substance: TACROLIMUS
     Indication: DIFFUSE CUTANEOUS MASTOCYTOSIS
     Dosage: 0.1 MG/KG, QD

REACTIONS (2)
  - Diarrhoea [Recovered/Resolved]
  - Blood urea increased [Recovered/Resolved]
